FAERS Safety Report 22586018 (Version 3)
Quarter: 2023Q2

REPORT INFORMATION
  Report Type: Report from Study
  Country: US (occurrence: US)
  Receive Date: 20230610
  Receipt Date: 20230626
  Transmission Date: 20230721
  Serious: No
  Sender: FDA-Public Use
  Company Number: US-002147023-NVSC2023US129188

PATIENT
  Sex: Male

DRUGS (2)
  1. OMNITROPE [Suspect]
     Active Substance: SOMATROPIN
     Indication: Product used for unknown indication
     Dosage: 0.22 ML, QD
     Route: 058
     Dates: start: 20230512
  2. OMNITROPE [Suspect]
     Active Substance: SOMATROPIN
     Dosage: 0.22 ML, QD
     Route: 058

REACTIONS (2)
  - Myalgia [Unknown]
  - Injection site bruising [Unknown]
